FAERS Safety Report 4859413-6 (Version None)
Quarter: 2005Q4

REPORT INFORMATION
  Report Type: 
  Country: None (occurrence: None)
  Receive Date: 20051219
  Receipt Date: 20041123
  Transmission Date: 20060501
  Serious: No
  Sender: FDA-Public Use
  Company Number: US-GLAXOSMITHKLINE-A0534935A

PATIENT

DRUGS (1)
  1. NICODERM CQ [Suspect]
     Dates: start: 20041109

REACTIONS (3)
  - DIZZINESS [None]
  - HEADACHE [None]
  - NERVOUSNESS [None]
